FAERS Safety Report 25373662 (Version 1)
Quarter: 2025Q2

REPORT INFORMATION
  Report Type: Spontaneous
  Country: AU (occurrence: AU)
  Receive Date: 20250529
  Receipt Date: 20250529
  Transmission Date: 20250716
  Serious: Yes (Other)
  Sender: ORGANON
  Company Number: AU-SUN PHARMACEUTICAL INDUSTRIES LTD-2025R1-502098

PATIENT
  Age: 12 Year
  Sex: Female

DRUGS (4)
  1. CARBIDOPA\LEVODOPA [Suspect]
     Active Substance: CARBIDOPA\LEVODOPA
     Indication: Neurotoxicity
     Dosage: 50MG TO 12.5MG
     Route: 065
  2. ANAKINRA [Suspect]
     Active Substance: ANAKINRA
     Indication: Neurotoxicity
     Dosage: 100 MILLIGRAM, QD
     Route: 065
  3. DASATINIB [Suspect]
     Active Substance: DASATINIB
     Indication: Neurotoxicity
     Route: 065
  4. HYDROCORTISONE [Suspect]
     Active Substance: HYDROCORTISONE
     Indication: Neurotoxicity
     Route: 037

REACTIONS (1)
  - Therapeutic response decreased [Unknown]
